FAERS Safety Report 16438971 (Version 4)
Quarter: 2021Q4

REPORT INFORMATION
  Report Type: Spontaneous
  Country: US (occurrence: US)
  Receive Date: 20190617
  Receipt Date: 20211207
  Transmission Date: 20220303
  Serious: Yes (Hospitalization, Disabling, Other)
  Sender: FDA-Public Use
  Company Number: US-ELI_LILLY_AND_COMPANY-US201906002337

PATIENT
  Sex: Male

DRUGS (16)
  1. HUMALOG [Suspect]
     Active Substance: INSULIN LISPRO
     Indication: Product used for unknown indication
     Dosage: UNK UNK, UNKNOWN
     Route: 065
     Dates: end: 2013
  2. HUMULIN R [Suspect]
     Active Substance: INSULIN HUMAN
     Indication: Type 2 diabetes mellitus
     Dosage: UNK, UNKNOWN
     Route: 058
     Dates: start: 2013
  3. HUMULIN R [Suspect]
     Active Substance: INSULIN HUMAN
     Dosage: 250 U, UNKNOWN
     Route: 058
     Dates: start: 2016
  4. INSULIN LISPRO [Suspect]
     Active Substance: INSULIN LISPRO
     Indication: Product used for unknown indication
     Dosage: UNK UNK, UNKNOWN
     Route: 065
     Dates: start: 201901
  5. LANTUS [Concomitant]
     Active Substance: INSULIN GLARGINE
     Indication: Diabetes mellitus
     Dosage: UNK
  6. NOVOLIN R [Concomitant]
     Active Substance: INSULIN HUMAN
     Indication: Type 2 diabetes mellitus
  7. GABAPENTIN [Concomitant]
     Active Substance: GABAPENTIN
     Indication: Pain
     Dosage: 600 MG, TID
  8. LOSARTAN [Concomitant]
     Active Substance: LOSARTAN
     Indication: Cardiac disorder
  9. FAMOTIDINE [Concomitant]
     Active Substance: FAMOTIDINE
     Indication: Product used for unknown indication
     Dosage: 40 MG, DAILY
  10. ALEVE [Concomitant]
     Active Substance: NAPROXEN SODIUM
     Indication: Product used for unknown indication
  11. ASPIRIN [Concomitant]
     Active Substance: ASPIRIN
     Indication: Cardiac disorder
     Dosage: 81 MG, DAILY
  12. LABETALOL [Concomitant]
     Active Substance: LABETALOL\LABETALOL HYDROCHLORIDE
     Indication: Type 2 diabetes mellitus
     Dosage: 25 MG, BID
  13. FUROSEMIDE [Concomitant]
     Active Substance: FUROSEMIDE
     Indication: Cardiac disorder
  14. ATORVASTATIN [Concomitant]
     Active Substance: ATORVASTATIN
     Indication: Cardiac disorder
     Dosage: 40 MG, DAILY
  15. BUSPIRONE [Concomitant]
     Active Substance: BUSPIRONE HYDROCHLORIDE
     Indication: Gastrooesophageal reflux disease
     Dosage: 10 MG, DAILY
  16. METFORMIN HYDROCHLORIDE [Concomitant]
     Active Substance: METFORMIN HYDROCHLORIDE
     Indication: Type 2 diabetes mellitus
     Dosage: 1000 MG, DAILY

REACTIONS (22)
  - Atrioventricular block [Not Recovered/Not Resolved]
  - Cardiac steatosis [Not Recovered/Not Resolved]
  - Syncope [Unknown]
  - Gangrene [Unknown]
  - Neuropathy peripheral [Not Recovered/Not Resolved]
  - Blindness unilateral [Unknown]
  - Syncope [Unknown]
  - Eye haemorrhage [Unknown]
  - Visual impairment [Unknown]
  - Blood glucose increased [Unknown]
  - Glycosylated haemoglobin increased [Unknown]
  - Insulin resistance [Unknown]
  - Gastroenteritis [Unknown]
  - Blood glucose increased [Unknown]
  - Gait disturbance [Unknown]
  - Anxiety [Not Recovered/Not Resolved]
  - Nasopharyngitis [Unknown]
  - Fall [Unknown]
  - Sinus congestion [Unknown]
  - Hypoaesthesia [Not Recovered/Not Resolved]
  - Stress [Not Recovered/Not Resolved]
  - Wrong technique in product usage process [Unknown]
